FAERS Safety Report 8802267 (Version 2)
Quarter: 2015Q2

REPORT INFORMATION
  Report Type: Report from Study
  Country: US (occurrence: US)
  Receive Date: 20120921
  Receipt Date: 20150630
  Transmission Date: 20150821
  Serious: Yes (Death, Hospitalization, Other)
  Sender: FDA-Public Use
  Company Number: US-ROCHE-1103811

PATIENT
  Sex: Female
  Weight: 58.6 kg

DRUGS (13)
  1. TAXOL [Concomitant]
     Active Substance: PACLITAXEL
  2. PEPCID [Concomitant]
     Active Substance: FAMOTIDINE
  3. ALOXI [Concomitant]
     Active Substance: PALONOSETRON HYDROCHLORIDE
  4. MEPERIDINE [Concomitant]
     Active Substance: MEPERIDINE
     Route: 065
  5. LORAZEPAM. [Concomitant]
     Active Substance: LORAZEPAM
  6. DEXAMETHASONE. [Concomitant]
     Active Substance: DEXAMETHASONE
  7. CARBOPLATIN. [Concomitant]
     Active Substance: CARBOPLATIN
  8. AVASTIN [Suspect]
     Active Substance: BEVACIZUMAB
     Indication: MALIGNANT MELANOMA
     Route: 042
     Dates: start: 20090818
  9. TEMOZOLOMIDE. [Concomitant]
     Active Substance: TEMOZOLOMIDE
  10. GRANISETRON [Suspect]
     Active Substance: GRANISETRON
     Indication: PRODUCT USED FOR UNKNOWN INDICATION
     Route: 065
  11. NEULASTA [Concomitant]
     Active Substance: PEGFILGRASTIM
     Route: 065
  12. PROCHLORPERAZINE. [Concomitant]
     Active Substance: PROCHLORPERAZINE
     Route: 065
  13. DIPHENHYDRAMINE [Concomitant]
     Active Substance: DIPHENHYDRAMINE

REACTIONS (11)
  - Pupils unequal [Unknown]
  - Disease progression [Unknown]
  - Lymphoedema [Unknown]
  - Pancytopenia [Unknown]
  - Neutropenia [Unknown]
  - Death [Fatal]
  - Pyrexia [Unknown]
  - Constipation [Unknown]
  - Arthralgia [Unknown]
  - Anaemia [Unknown]
  - Thrombocytopenia [Unknown]
